FAERS Safety Report 24388341 (Version 1)
Quarter: 2024Q4

REPORT INFORMATION
  Report Type: Spontaneous
  Country: CA (occurrence: CA)
  Receive Date: 20241002
  Receipt Date: 20241002
  Transmission Date: 20250115
  Serious: Yes (Life-Threatening, Hospitalization, Other)
  Sender: DAIICHI
  Company Number: CA-AstraZeneca-CH-00709488A

PATIENT
  Sex: Female

DRUGS (2)
  1. TRASTUZUMAB DERUXTECAN [Suspect]
     Active Substance: TRASTUZUMAB DERUXTECAN
     Indication: Metastases to biliary tract
     Dosage: 1500 MILLIGRAM, Q4W
     Route: 042
  2. IMFINZI [Suspect]
     Active Substance: DURVALUMAB
     Indication: Bile duct cancer
     Dosage: 1500 MILLIGRAM
     Route: 042

REACTIONS (5)
  - Acute myocardial infarction [Unknown]
  - Atrial fibrillation [Unknown]
  - Post procedural bile leak [Unknown]
  - Respiratory failure [Unknown]
  - Pneumonia [Unknown]
